FAERS Safety Report 6197235-7 (Version None)
Quarter: 2009Q2

REPORT INFORMATION
  Report Type: 
  Country: None (occurrence: None)
  Receive Date: 20090521
  Receipt Date: 20071203
  Transmission Date: 20091009
  Serious: Yes (Hospitalization, Other)
  Sender: FDA-Public Use
  Company Number: US-ASTRAZENECA-2006UW22234

PATIENT
  Age: 12 Year
  Sex: Male
  Weight: 90.9 kg

DRUGS (23)
  1. SEROQUEL [Suspect]
     Indication: DEPRESSION
     Route: 048
     Dates: start: 20030101, end: 20060101
  2. SEROQUEL [Suspect]
     Indication: ANXIETY
     Route: 048
     Dates: start: 20030101, end: 20060101
  3. SEROQUEL [Suspect]
     Route: 048
     Dates: start: 20040227
  4. SEROQUEL [Suspect]
     Route: 048
     Dates: start: 20040227
  5. HUMULIN N [Concomitant]
     Dosage: 36 UNITS, 22U/0.22ML AND 32U/0.32ML
     Route: 065
  6. CELEXA [Concomitant]
     Indication: DEPRESSION
     Route: 065
  7. DDAVP [Concomitant]
     Indication: ENURESIS
     Dosage: 0.1 - 0.4 MG
     Route: 048
  8. ALBUTEROL [Concomitant]
     Indication: WHEEZING
     Dosage: 17 GM, 16.8 GMS
     Route: 065
  9. HUMALOG [Concomitant]
     Dosage: 4 - 15 UNITS
     Route: 058
  10. AUGMENTIN '125' [Concomitant]
     Dosage: 500 MG, 875 MG
     Route: 048
  11. TRETINOIN [Concomitant]
     Route: 065
  12. RANITIDINE [Concomitant]
     Dosage: 50 MG, 150 MG
     Route: 048
  13. IBUPROFEN [Concomitant]
     Route: 048
  14. PREVACID [Concomitant]
     Indication: GASTROOESOPHAGEAL REFLUX DISEASE
     Route: 048
  15. IMIPRAMINE [Concomitant]
     Indication: DEPRESSION
     Dosage: 50 MG, 100 MG
     Route: 048
     Dates: start: 20050526, end: 20050722
  16. IMIPRAMINE [Concomitant]
     Indication: ANXIETY
     Dosage: 50 MG, 100 MG
     Route: 048
     Dates: start: 20050526, end: 20050722
  17. CLOTRIMAZOLE [Concomitant]
     Route: 061
     Dates: start: 20050526, end: 20050623
  18. ATARAX [Concomitant]
     Indication: AGITATION
     Route: 048
     Dates: start: 20050530, end: 20050628
  19. NIZORAL CREAM [Concomitant]
     Indication: TINEA VERSICOLOUR
     Route: 061
  20. SERTRALINE HCL [Concomitant]
     Route: 065
  21. AZITHROMYCIN [Concomitant]
     Route: 048
  22. PROZAC [Concomitant]
     Indication: DEPRESSION
     Route: 048
  23. NOVOLOG [Concomitant]
     Dosage: 15 , 24 UNITS TWICE
     Route: 058

REACTIONS (24)
  - ABDOMINAL PAIN [None]
  - ABDOMINAL RIGIDITY [None]
  - ACNE [None]
  - ANXIETY [None]
  - BLOOD GLUCOSE INCREASED [None]
  - BRONCHITIS [None]
  - DEHYDRATION [None]
  - DEPRESSION [None]
  - DIABETES MELLITUS [None]
  - DIABETIC KETOACIDOSIS [None]
  - DIABETIC NEUROPATHY [None]
  - DYSTHYMIC DISORDER [None]
  - FACIAL PALSY [None]
  - GASTROENTERITIS [None]
  - GASTROOESOPHAGEAL REFLUX DISEASE [None]
  - HAEMOGLOBINURIA [None]
  - HYPERGLYCAEMIA [None]
  - NAUSEA [None]
  - OTITIS MEDIA [None]
  - RHINITIS [None]
  - SINUS CONGESTION [None]
  - TINEA VERSICOLOUR [None]
  - URINARY INCONTINENCE [None]
  - VOMITING [None]
